FAERS Safety Report 6968311-3 (Version None)
Quarter: 2010Q3

REPORT INFORMATION
  Report Type: 
  Country: None (occurrence: None)
  Receive Date: 20100907
  Receipt Date: 20100825
  Transmission Date: 20110219
  Serious: Yes (Disabling)
  Sender: FDA-Public Use
  Company Number: JP-SANOFI-AVENTIS-2010SA052258

PATIENT
  Age: 61 Year
  Sex: Female

DRUGS (7)
  1. ELPLAT [Suspect]
     Indication: COLON CANCER
     Route: 041
  2. ELPLAT [Suspect]
     Route: 041
     Dates: start: 20100625, end: 20100625
  3. ELPLAT [Suspect]
     Route: 041
     Dates: start: 20100723, end: 20100723
  4. CALCIUM LEVOFOLINATE [Concomitant]
     Indication: COLON CANCER
     Route: 041
  5. CALCIUM LEVOFOLINATE [Concomitant]
     Route: 041
     Dates: start: 20100723, end: 20100723
  6. FLUOROURACIL [Concomitant]
     Route: 040
  7. FLUOROURACIL [Concomitant]
     Route: 041

REACTIONS (3)
  - GINGIVAL BLEEDING [None]
  - HAEMORRHAGE URINARY TRACT [None]
  - VITREOUS HAEMORRHAGE [None]
